FAERS Safety Report 4774686-6 (Version None)
Quarter: 2005Q3

REPORT INFORMATION
  Report Type: 
  Country: None (occurrence: None)
  Receive Date: 20050921
  Receipt Date: 20050909
  Transmission Date: 20060218
  Serious: Yes (Life-Threatening, Hospitalization)
  Sender: FDA-Public Use
  Company Number: FR-ROCHE-417303

PATIENT
  Age: 83 Year
  Sex: Female

DRUGS (2)
  1. ROCEPHIN [Suspect]
     Route: 065
     Dates: end: 20050909
  2. TIBERAL ROCHE [Suspect]
     Route: 065
     Dates: end: 20050909

REACTIONS (4)
  - COMA [None]
  - ENCEPHALOPATHY [None]
  - GRAND MAL CONVULSION [None]
  - RENAL FAILURE [None]
